FAERS Safety Report 15981982 (Version 1)
Quarter: 2019Q1

REPORT INFORMATION
  Report Type: Spontaneous
  Country: BR (occurrence: BR)
  Receive Date: 20190219
  Receipt Date: 20190219
  Transmission Date: 20190418
  Serious: Yes (Disabling)
  Sender: FDA-Public Use
  Company Number: BR-ALLERGAN-1835972US

PATIENT
  Age: 59 Year
  Sex: Female

DRUGS (4)
  1. OPTIVE FUSION (CARBOXYMETHYLCELLULOSE SODIUM\GLYCERIN) [Suspect]
     Active Substance: CARBOXYMETHYLCELLULOSE SODIUM\GLYCERIN
     Indication: EYE LUBRICATION THERAPY
  2. LOSARTAN. [Concomitant]
     Active Substance: LOSARTAN
     Dosage: UNK
  3. SIMVASTATIN. [Concomitant]
     Active Substance: SIMVASTATIN
     Dosage: UNK
  4. OPTIVE FUSION (CARBOXYMETHYLCELLULOSE SODIUM\GLYCERIN) [Suspect]
     Active Substance: CARBOXYMETHYLCELLULOSE SODIUM\GLYCERIN
     Indication: DRY EYE
     Dosage: 1 GTT, SINGLE
     Route: 047
     Dates: start: 20180718, end: 20180718

REACTIONS (11)
  - Eye irritation [None]
  - Blindness [Unknown]
  - Eye irritation [Unknown]
  - Eye pruritus [Not Recovered/Not Resolved]
  - Visual impairment [Not Recovered/Not Resolved]
  - Vision blurred [Not Recovered/Not Resolved]
  - Eye swelling [Unknown]
  - Eye pain [Not Recovered/Not Resolved]
  - Product colour issue [Unknown]
  - Eye colour change [Recovered/Resolved]
  - Skin hyperpigmentation [Unknown]

NARRATIVE: CASE EVENT DATE: 20180718
